FAERS Safety Report 8936024 (Version 1)
Quarter: 2012Q4

REPORT INFORMATION
  Report Type: 
  Country: FR (occurrence: FR)
  Receive Date: 20121130
  Receipt Date: 20121130
  Transmission Date: 20130627
  Serious: Yes (Other)
  Sender: FDA-Public Use
  Company Number: FR-B.I. PHARMACEUTICALS,INC./RIDGEFIELD-2012-FF-01754FF

PATIENT
  Sex: Female

DRUGS (3)
  1. SIFROL [Suspect]
     Indication: PARKINSON^S DISEASE
     Dosage: 1.3 mg
     Route: 048
     Dates: start: 201208
  2. SINEMET [Suspect]
     Indication: PARKINSON^S DISEASE
     Dosage: 625 mg
     Route: 048
     Dates: start: 201011
  3. PIRIBEDIL [Suspect]
     Indication: PARKINSON^S DISEASE
     Dosage: 100 mg
     Route: 048
     Dates: start: 201208

REACTIONS (6)
  - Impulse-control disorder [Not Recovered/Not Resolved]
  - Psychomotor hyperactivity [Not Recovered/Not Resolved]
  - Increased appetite [Not Recovered/Not Resolved]
  - Stereotypy [Not Recovered/Not Resolved]
  - Hypersexuality [Not Recovered/Not Resolved]
  - Compulsive shopping [Recovered/Resolved]
